FAERS Safety Report 7705468-0 (Version None)
Quarter: 2011Q3

REPORT INFORMATION
  Report Type: 
  Country: None (occurrence: None)
  Receive Date: 20110818
  Receipt Date: 20110808
  Transmission Date: 20111222
  Serious: Yes (Other)
  Sender: FDA-Public Use
  Company Number: AUR-APL-2011-04641

PATIENT
  Age: 62 Year
  Sex: Male
  Weight: 81.63 kg

DRUGS (6)
  1. CORGARD [Concomitant]
  2. LISINOPRIL [Suspect]
     Indication: HYPERTENSION
  3. VITAMIN B12 [Concomitant]
  4. DEPO-TESTOSTERONE [Suspect]
     Indication: BLOOD TESTOSTERONE DECREASED
     Dosage: SEE IMAGE
     Dates: start: 20110301, end: 20110101
  5. DEPO-TESTOSTERONE [Suspect]
     Indication: BLOOD TESTOSTERONE DECREASED
     Dosage: SEE IMAGE
     Dates: start: 20110101
  6. DEPO-TESTOSTERONE [Suspect]
     Indication: BLOOD TESTOSTERONE DECREASED
     Dosage: SEE IMAGE
     Dates: start: 20100901, end: 20110301

REACTIONS (10)
  - HYPERSENSITIVITY [None]
  - CONDITION AGGRAVATED [None]
  - ARTHROPOD STING [None]
  - HEADACHE [None]
  - SCROTAL DISORDER [None]
  - ERYTHEMA [None]
  - BLOOD TESTOSTERONE DECREASED [None]
  - LIBIDO DECREASED [None]
  - TESTICULAR DISORDER [None]
  - BLOOD PRESSURE INCREASED [None]
